FAERS Safety Report 7536712-0 (Version None)
Quarter: 2011Q2

REPORT INFORMATION
  Report Type: 
  Country: None (occurrence: None)
  Receive Date: 20110609
  Receipt Date: 20110530
  Transmission Date: 20111010
  Serious: Yes (Death)
  Sender: FDA-Public Use
  Company Number: B0696232A

PATIENT
  Sex: Female
  Weight: 50 kg

DRUGS (5)
  1. LANSOPRAZOLE [Concomitant]
     Dosage: 15MG PER DAY
     Route: 048
  2. FOSAMAC [Concomitant]
     Dosage: 35MG PER DAY
     Route: 048
  3. PROMACTA [Suspect]
     Indication: IDIOPATHIC THROMBOCYTOPENIC PURPURA
     Dosage: 50MG PER DAY
     Route: 048
     Dates: start: 20101223, end: 20110102
  4. PREDNISOLONE [Concomitant]
     Indication: IDIOPATHIC THROMBOCYTOPENIC PURPURA
  5. FERROUS CITRATE [Concomitant]
     Indication: IDIOPATHIC THROMBOCYTOPENIC PURPURA
     Dosage: 50MG PER DAY
     Route: 048

REACTIONS (1)
  - SUBARACHNOID HAEMORRHAGE [None]
